FAERS Safety Report 9845197 (Version 1)
Quarter: 2014Q1

REPORT INFORMATION
  Report Type: Report from Study
  Country: NL (occurrence: NL)
  Receive Date: 20140127
  Receipt Date: 20140127
  Transmission Date: 20141002
  Serious: Yes (Other)
  Sender: FDA-Public Use
  Company Number: NL-MYLANLABS-2014S1001209

PATIENT
  Age: 72 Year
  Sex: Male

DRUGS (4)
  1. CARBOPLATIN [Suspect]
     Indication: LUNG CANCER METASTATIC
     Dosage: AUC 6; FOUR CYCLES RECEIVED
     Route: 065
  2. PACLITAXEL [Suspect]
     Indication: LUNG CANCER METASTATIC
     Dosage: 200 MG/M2
     Route: 065
  3. BEVACIZUMAB [Suspect]
     Indication: LUNG CANCER METASTATIC
     Dosage: 52 TREATMENT CYCLES PLANNED
     Route: 065
  4. GEMCITABINE [Suspect]
     Indication: LUNG CANCER METASTATIC
     Dosage: 1200 MG/M2 ON DAYS 1 + 8 IN FOURTH CYCLE
     Route: 065

REACTIONS (5)
  - Leukopenia [Unknown]
  - Hypersensitivity [Unknown]
  - Fatigue [Unknown]
  - Neuropathy peripheral [Unknown]
  - Rhinorrhoea [Unknown]
